FAERS Safety Report 5671235-5 (Version None)
Quarter: 2008Q1

REPORT INFORMATION
  Report Type: 
  Country: None (occurrence: None)
  Receive Date: 20080318
  Receipt Date: 20080314
  Transmission Date: 20080703
  Serious: Yes (Hospitalization)
  Sender: FDA-Public Use
  Company Number: IE-WYE-G00927708

PATIENT
  Sex: Male
  Weight: 86 kg

DRUGS (4)
  1. TEMSIROLIMUS [Suspect]
     Indication: RENAL CELL CARCINOMA
     Dosage: 25MG FREQUENCY UNKNOWN
     Route: 042
     Dates: start: 20080108, end: 20080108
  2. TRAMADOL HCL [Concomitant]
     Indication: PAIN
     Dosage: 100 MG EVERY 1 PRN
     Route: 048
     Dates: start: 20071201
  3. ISTIN [Concomitant]
     Indication: HYPERTENSION
     Route: 048
     Dates: start: 20060101
  4. LYRICA [Concomitant]
     Indication: NEURALGIA
     Route: 048
     Dates: start: 20071201

REACTIONS (3)
  - AGITATION [None]
  - CONFUSIONAL STATE [None]
  - HALLUCINATIONS, MIXED [None]
